FAERS Safety Report 7848556 (Version 6)
Quarter: 2012Q4

REPORT INFORMATION
  Report Type: 
  Country: US (occurrence: US)
  Receive Date: 20110309
  Receipt Date: 20121102
  Transmission Date: 20130627
  Serious: Yes (Hospitalization, Other)
  Sender: FDA-Public Use
  Company Number: US-PFIZER INC-2011044700

PATIENT
  Sex: Female

DRUGS (2)
  1. PROTONIX [Suspect]
     Dosage: UNK
  2. PREMARIN [Suspect]
     Dosage: UNK

REACTIONS (5)
  - Gastric polyps [Unknown]
  - Cardiac disorder [Unknown]
  - Hypoacusis [Unknown]
  - Diabetes mellitus [Unknown]
  - Wound [Unknown]
